FAERS Safety Report 18783711 (Version 1)
Quarter: 2021Q1

REPORT INFORMATION
  Report Type: Spontaneous
  Country: US (occurrence: US)
  Receive Date: 20210125
  Receipt Date: 20210125
  Transmission Date: 20210419
  Serious: Yes (Life-Threatening, Hospitalization, Other)
  Sender: FDA-Public Use
  Company Number: US-ACCORD-215585

PATIENT
  Age: 53 Year
  Sex: Male

DRUGS (3)
  1. VALPROIC ACID. [Suspect]
     Active Substance: VALPROIC ACID
  2. ACETYLSALICYLIC ACID [Suspect]
     Active Substance: ASPIRIN
     Dosage: (APPROX. 2500 MG)
  3. AMLODIPINE [Suspect]
     Active Substance: AMLODIPINE BESYLATE

REACTIONS (9)
  - Acidosis [Recovering/Resolving]
  - Intentional overdose [Unknown]
  - Hypotension [Recovering/Resolving]
  - Distributive shock [Recovering/Resolving]
  - Pulmonary oedema [Recovering/Resolving]
  - Acute kidney injury [Recovering/Resolving]
  - Hypoxia [Recovering/Resolving]
  - Altered state of consciousness [Recovering/Resolving]
  - Suicide attempt [Unknown]
